FAERS Safety Report 11055155 (Version 1)
Quarter: 2015Q2

REPORT INFORMATION
  Report Type: Spontaneous
  Country: US (occurrence: None)
  Receive Date: 20150421
  Receipt Date: 20150421
  Transmission Date: 20150821
  Serious: Yes (Life-Threatening)
  Sender: FDA-Public Use
  Company Number: None

PATIENT
  Age: 46 Year
  Sex: Male
  Weight: 91.17 kg

DRUGS (2)
  1. PREDNISONE 5MG MFG FOR QUALITEST [Suspect]
     Active Substance: PREDNISONE
     Indication: ARTHRITIS
     Route: 048
     Dates: start: 20150420, end: 20150420
  2. ASPIRIN. [Concomitant]
     Active Substance: ASPIRIN

REACTIONS (2)
  - Heart rate increased [None]
  - Atrial fibrillation [None]

NARRATIVE: CASE EVENT DATE: 20150420
